FAERS Safety Report 11580554 (Version 2)
Quarter: 2015Q4

REPORT INFORMATION
  Report Type: Spontaneous
  Country: NO (occurrence: NO)
  Receive Date: 20150930
  Receipt Date: 20151020
  Transmission Date: 20160304
  Serious: Yes (Other)
  Sender: FDA-Public Use
  Company Number: NO-ALLERGAN-1519699US

PATIENT
  Age: 58 Year
  Sex: Female

DRUGS (1)
  1. DAPSONE UNK [Suspect]
     Active Substance: DAPSONE
     Indication: PRODUCT USED FOR UNKNOWN INDICATION

REACTIONS (5)
  - Methaemoglobinaemia [Unknown]
  - Polyneuropathy [Unknown]
  - Visual impairment [Unknown]
  - Fatigue [Unknown]
  - Cough [Unknown]
